FAERS Safety Report 20947507 (Version 1)
Quarter: 2022Q2

REPORT INFORMATION
  Report Type: Spontaneous
  Country: US (occurrence: US)
  Receive Date: 20220610
  Receipt Date: 20220610
  Transmission Date: 20220720
  Serious: No
  Sender: FDA-Public Use
  Company Number: US-RIGEL PHARMACEUTICALS, INC.-2021FOS000896

PATIENT
  Sex: Female

DRUGS (1)
  1. TAVALISSE [Suspect]
     Active Substance: FOSTAMATINIB
     Indication: Pulmonary mass
     Dosage: 100 MG, BID
     Route: 048
     Dates: start: 20210802

REACTIONS (11)
  - Platelet count [Unknown]
  - Burning sensation [Unknown]
  - Arthritis [Unknown]
  - Erythema [Unknown]
  - Osteoporosis [Unknown]
  - Off label use [Unknown]
  - Back pain [Unknown]
  - Peripheral swelling [Unknown]
  - Dyspnoea [Unknown]
  - Diarrhoea [Unknown]
  - Dizziness [Unknown]

NARRATIVE: CASE EVENT DATE: 20210101
